FAERS Safety Report 5964736-3 (Version None)
Quarter: 2008Q4

REPORT INFORMATION
  Report Type: 
  Country: None (occurrence: None)
  Receive Date: 20081125
  Receipt Date: 20080714
  Transmission Date: 20090506
  Serious: No
  Sender: FDA-Public Use
  Company Number: US-AMGEN-US276129

PATIENT
  Sex: Male

DRUGS (1)
  1. ENBREL [Suspect]
     Indication: PSORIATIC ARTHROPATHY
     Route: 065
     Dates: start: 20071101

REACTIONS (3)
  - ABDOMINAL DISCOMFORT [None]
  - BOWEL MOVEMENT IRREGULARITY [None]
  - FOOD POISONING [None]
